FAERS Safety Report 6946096-4 (Version None)
Quarter: 2010Q3

REPORT INFORMATION
  Report Type: 
  Country: None (occurrence: None)
  Receive Date: 20100827
  Receipt Date: 20100819
  Transmission Date: 20110219
  Serious: Yes (Hospitalization, Disabling)
  Sender: FDA-Public Use
  Company Number: CH-ABBOTT-10P-151-0664926-00

PATIENT
  Age: 31 Year
  Sex: Female

DRUGS (9)
  1. HUMIRA [Suspect]
     Indication: ANKYLOSING SPONDYLITIS
     Dosage: CYCLIC
     Route: 058
     Dates: start: 20100629, end: 20100720
  2. FLUOXETINE HYDROCHLORIDE [Suspect]
     Indication: AFFECTIVE DISORDER
     Dosage: 20, 30, THEN 40MG 1X/DAY SINCE JUNE
     Route: 048
     Dates: start: 20100401
  3. LYRICA [Suspect]
     Indication: PAIN
     Route: 048
  4. ACETAMINOPHEN [Concomitant]
     Indication: PAIN
     Dosage: 2 PER DAY, MAX 4G/DAY
     Route: 048
  5. NAPROXEN [Concomitant]
     Indication: PAIN
     Route: 048
  6. OXYCONTIN [Concomitant]
     Indication: PAIN
     Route: 048
  7. OXYCODONE HCL [Concomitant]
     Indication: PAIN
     Dosage: 1-4 PER DAY IN RESERVE
     Route: 048
  8. DIAZEPAM [Concomitant]
     Indication: MUSCLE CONTRACTURE
     Route: 048
  9. LORAZEPAM [Concomitant]
     Indication: ANXIETY DISORDER
     Route: 048

REACTIONS (4)
  - CHOREOATHETOSIS [None]
  - DEPRESSION [None]
  - PSEUDOPARALYSIS [None]
  - TREMOR [None]
